FAERS Safety Report 19269855 (Version 1)
Quarter: 2021Q2

REPORT INFORMATION
  Report Type: Spontaneous
  Country: JP (occurrence: JP)
  Receive Date: 20210518
  Receipt Date: 20210518
  Transmission Date: 20210717
  Serious: Yes (Hospitalization)
  Sender: FDA-Public Use
  Company Number: JP-AMGEN-JPNSP2021074343

PATIENT
  Age: 71 Year
  Sex: Male
  Weight: 62.5 kg

DRUGS (17)
  1. EPOETIN ALFA [Concomitant]
     Active Substance: ERYTHROPOIETIN
     Dosage: 7500 INTERNATIONAL UNIT, QWK
     Route: 065
     Dates: start: 20180326, end: 20180420
  2. CALCITRIOL. [Concomitant]
     Active Substance: CALCITRIOL
     Indication: HYPERPARATHYROIDISM SECONDARY
     Dosage: 1 MICROGRAM, Q56H
     Route: 042
     Dates: start: 20190527, end: 20190607
  3. P?TOL [MANNITOL] [Concomitant]
     Active Substance: MANNITOL
     Dosage: 500 MILLIGRAM, QD
     Route: 048
     Dates: start: 20180311
  4. PARSABIV [Suspect]
     Active Substance: ETELCALCETIDE HYDROCHLORIDE
     Indication: HYPERPARATHYROIDISM SECONDARY
     Dosage: 5 MILLIGRAM,  Q56H
     Route: 010
     Dates: start: 20200729
  5. CALCITRIOL. [Concomitant]
     Active Substance: CALCITRIOL
     Dosage: 1 MICROGRAM, Q84H
     Route: 042
     Dates: start: 20190610, end: 20191108
  6. EPOETIN ALFA [Concomitant]
     Active Substance: ERYTHROPOIETIN
     Dosage: 4500 INTERNATIONAL UNIT, QWK
     Route: 065
     Dates: end: 20180223
  7. CALCITRIOL. [Concomitant]
     Active Substance: CALCITRIOL
     Dosage: 1 MICROGRAM, Q56H
     Route: 042
     Dates: start: 20191111, end: 20200410
  8. P?TOL [MANNITOL] [Concomitant]
     Active Substance: MANNITOL
     Dosage: 1500 MILLIGRAM, QD
     Route: 065
     Dates: start: 20200413
  9. EPOETIN ALFA [Concomitant]
     Active Substance: ERYTHROPOIETIN
     Dosage: 6000 INTERNATIONAL UNIT, QWK
     Route: 065
     Dates: start: 20190930, end: 20200217
  10. EPOETIN ALFA [Concomitant]
     Active Substance: ERYTHROPOIETIN
     Dosage: 9000 INTERNATIONAL UNIT, QWK
     Route: 065
     Dates: start: 20200221
  11. HEPARIN [Concomitant]
     Active Substance: HEPARIN SODIUM
     Dosage: UNK
     Route: 065
  12. CALCITRIOL. [Concomitant]
     Active Substance: CALCITRIOL
     Dosage: 1 MICROGRAM, Q56H
     Route: 042
     Dates: start: 20201113
  13. P?TOL [MANNITOL] [Concomitant]
     Active Substance: MANNITOL
     Dosage: 750 MILLIGRAM, QD
     Route: 065
     Dates: start: 20190705, end: 20200412
  14. EPOETIN ALFA [Concomitant]
     Active Substance: ERYTHROPOIETIN
     Dosage: 6000 INTERNATIONAL UNIT, QWK
     Route: 065
     Dates: start: 20180226, end: 20180323
  15. EPOETIN ALFA [Concomitant]
     Active Substance: ERYTHROPOIETIN
     Dosage: 9000 INTERNATIONAL UNIT, QWK
     Route: 065
     Dates: start: 20180423, end: 20190927
  16. FOSRENOL [Concomitant]
     Active Substance: LANTHANUM CARBONATE
     Dosage: 750 MILLIGRAM, QD
     Route: 065
     Dates: start: 20200612
  17. CALCITRIOL. [Concomitant]
     Active Substance: CALCITRIOL
     Dosage: 1.5 MICROGRAM, Q56H
     Route: 042
     Dates: start: 20200413, end: 20201111

REACTIONS (1)
  - Dialysis hypotension [Recovered/Resolved]

NARRATIVE: CASE EVENT DATE: 20210226
